FAERS Safety Report 14906873 (Version 1)
Quarter: 2018Q2

REPORT INFORMATION
  Report Type: Spontaneous
  Country: DE (occurrence: DE)
  Receive Date: 20180517
  Receipt Date: 20180517
  Transmission Date: 20180711
  Serious: Yes (Other)
  Sender: FDA-Public Use
  Company Number: DE-TEVA-2018-DE-893877

PATIENT
  Sex: Male

DRUGS (3)
  1. ACETYLSALICYLIC ACID [Suspect]
     Active Substance: ASPIRIN
     Route: 065
  2. CLOPIDOGREL [Suspect]
     Active Substance: CLOPIDOGREL BISULFATE
     Route: 048
  3. XARELTO [Suspect]
     Active Substance: RIVAROXABAN
     Dosage: 15 MILLIGRAM DAILY;
     Route: 065

REACTIONS (2)
  - Haemorrhage [Unknown]
  - Contraindicated product administered [Unknown]
